FAERS Safety Report 17693957 (Version 2)
Quarter: 2020Q3

REPORT INFORMATION
  Report Type: Spontaneous
  Country: CA (occurrence: CA)
  Receive Date: 20200422
  Receipt Date: 20200825
  Transmission Date: 20201102
  Serious: Yes (Death, Other)
  Sender: FDA-Public Use
  Company Number: CA-PFIZER INC-2020156466

PATIENT
  Age: 69 Year
  Sex: Male

DRUGS (3)
  1. METHOTREXATE SODIUM. [Suspect]
     Active Substance: METHOTREXATE SODIUM
     Dosage: UNK
  2. LEFLUNOMIDE. [Concomitant]
     Active Substance: LEFLUNOMIDE
     Dosage: UNK
     Dates: start: 2019, end: 2020
  3. PREDNISONE. [Concomitant]
     Active Substance: PREDNISONE
     Indication: POLYMYALGIA RHEUMATICA
     Dosage: 10 MG, 1X/DAY
     Dates: end: 2020

REACTIONS (4)
  - Drug ineffective [Unknown]
  - Epistaxis [Unknown]
  - Mouth ulceration [Unknown]
  - Death [Fatal]
